FAERS Safety Report 10233763 (Version 1)
Quarter: 2014Q2

REPORT INFORMATION
  Report Type: Spontaneous
  Country: IT (occurrence: IT)
  Receive Date: 20140612
  Receipt Date: 20140612
  Transmission Date: 20141212
  Serious: Yes (Hospitalization)
  Sender: FDA-Public Use
  Company Number: IT-ACTAVIS-2014-12205

PATIENT
  Age: 43 Year
  Sex: Male

DRUGS (1)
  1. ALPRAZOLAM (UNKNOWN) [Suspect]
     Indication: ANXIETY
     Dosage: 120 GTT DROP(S), DAILY
     Route: 048
     Dates: start: 20121020, end: 20121120

REACTIONS (1)
  - Drug dependence [Recovering/Resolving]
